FAERS Safety Report 4433935-4 (Version None)
Quarter: 2004Q3

REPORT INFORMATION
  Report Type: 
  Country: None (occurrence: None)
  Receive Date: 20040825
  Receipt Date: 20040819
  Transmission Date: 20050211
  Serious: Yes (Death)
  Sender: FDA-Public Use
  Company Number: A01200403853

PATIENT
  Age: 35 Year
  Sex: Male

DRUGS (2)
  1. STILNOX- (ZOLPIDEM) [Suspect]
  2. ANDROCUR - (CYPROTERONE ACETATE) [Suspect]
     Dosage: 100 MG/ 50 MG

REACTIONS (8)
  - ABNORMAL BEHAVIOUR [None]
  - AGGRESSION [None]
  - ASTHENIA [None]
  - COMPLETED SUICIDE [None]
  - DEPRESSION [None]
  - DRUG INTERACTION [None]
  - HYPERKALAEMIA [None]
  - NERVOUSNESS [None]
